FAERS Safety Report 9942503 (Version 1)
Quarter: 2014Q1

REPORT INFORMATION
  Report Type: Report from Study
  Country: US (occurrence: US)
  Receive Date: 20140303
  Receipt Date: 20140303
  Transmission Date: 20141002
  Serious: No
  Sender: FDA-Public Use
  Company Number: US-ABBVIE-13P-163-1045012-00

PATIENT
  Age: 44 Year
  Sex: Male

DRUGS (4)
  1. HUMIRA [Suspect]
     Indication: CROHN^S DISEASE
     Dates: start: 20130201
  2. DILANTIN [Concomitant]
     Indication: CONVULSION
     Dosage: 5 TABS IN THE MORNING AND 5 TABS AT NIGHT
  3. CIPRO [Concomitant]
     Indication: CROHN^S DISEASE
  4. FLAGYL [Concomitant]
     Indication: CROHN^S DISEASE

REACTIONS (1)
  - Dry mouth [Not Recovered/Not Resolved]
